FAERS Safety Report 10096645 (Version 1)
Quarter: 2014Q2

REPORT INFORMATION
  Report Type: Spontaneous
  Country: US (occurrence: US)
  Receive Date: 20140422
  Receipt Date: 20140422
  Transmission Date: 20141212
  Serious: Yes (Other)
  Sender: FDA-Public Use
  Company Number: US-PFIZER INC-2014110479

PATIENT
  Age: 57 Year
  Sex: Female
  Weight: 77.1 kg

DRUGS (2)
  1. PREMARIN [Suspect]
     Indication: VULVOVAGINAL DRYNESS
     Dosage: UNK
     Dates: start: 20130929, end: 20131027
  2. PREMARIN [Suspect]
     Indication: VULVOVAGINAL PAIN

REACTIONS (3)
  - Suicidal ideation [Unknown]
  - Depression [Unknown]
  - Overdose [Unknown]
